FAERS Safety Report 20390427 (Version 1)
Quarter: 2022Q1

REPORT INFORMATION
  Report Type: Spontaneous
  Country: US (occurrence: US)
  Receive Date: 20220128
  Receipt Date: 20220128
  Transmission Date: 20220423
  Serious: No
  Sender: FDA-Public Use
  Company Number: US-ALLERGAN-2115758US

PATIENT

DRUGS (1)
  1. BOTOX COSMETIC [Suspect]
     Active Substance: ONABOTULINUMTOXINA
     Indication: Product used for unknown indication
     Dosage: 30 UNITS, SINGLE
     Dates: start: 20210415, end: 20210415

REACTIONS (2)
  - Product preparation error [Unknown]
  - Product physical issue [Unknown]

NARRATIVE: CASE EVENT DATE: 20210415
